FAERS Safety Report 21595703 (Version 2)
Quarter: 2024Q3

REPORT INFORMATION
  Report Type: Report from Study
  Country: US (occurrence: US)
  Receive Date: 20221115
  Receipt Date: 20240722
  Transmission Date: 20241017
  Serious: Yes (Hospitalization, Other)
  Sender: ABBVIE
  Company Number: US-ABBVIE-4200240

PATIENT
  Sex: Male
  Weight: 76.203 kg

DRUGS (2)
  1. DUOPA [Suspect]
     Active Substance: CARBIDOPA\LEVODOPA
     Indication: Parkinson^s disease
     Route: 050
     Dates: start: 20221016
  2. DUOPA [Suspect]
     Active Substance: CARBIDOPA\LEVODOPA
     Route: 050
     Dates: start: 201806, end: 20221015

REACTIONS (4)
  - Small intestinal obstruction [Recovering/Resolving]
  - White blood cell count increased [Recovered/Resolved]
  - Incarcerated inguinal hernia [Recovering/Resolving]
  - Colectomy [Unknown]

NARRATIVE: CASE EVENT DATE: 20220101
